FAERS Safety Report 8400098-X (Version None)
Quarter: 2012Q2

REPORT INFORMATION
  Report Type: 
  Country: None (occurrence: None)
  Receive Date: 20120531
  Receipt Date: 20120524
  Transmission Date: 20120825
  Serious: Yes (Other)
  Sender: FDA-Public Use
  Company Number: JP-PFIZER INC-2012105316

PATIENT
  Age: 88 Year
  Sex: Male

DRUGS (9)
  1. CANDESARTAN CILEXETIL [Concomitant]
     Dosage: 8 MG/DAY
     Route: 048
  2. ALOSENN [Concomitant]
     Dosage: 1 G/DAY
  3. DOXAZOSIN MESYLATE [Concomitant]
     Dosage: 2 MG/DAY
     Route: 048
  4. ZOLPIDEM [Concomitant]
     Dosage: 5 MG/DAY
     Route: 048
  5. RABEPRAZOLE SODIUM [Concomitant]
     Dosage: 20 MG/DAY
     Route: 048
  6. LYRICA [Suspect]
     Indication: NEURALGIA
     Dosage: 75 MG, 1X/DAY BEFORE SLEEP
     Route: 048
     Dates: start: 20120404, end: 20120420
  7. SITAGLIPTIN PHOSPHATE [Concomitant]
     Dosage: 50 MG/DAY
  8. AMARYL [Concomitant]
     Dosage: 1 MG/DAY
     Route: 048
  9. AMLODIPINE [Concomitant]
     Dosage: 5 MG/DAY
     Route: 048

REACTIONS (2)
  - OEDEMA PERIPHERAL [None]
  - GLUCOSE URINE PRESENT [None]
